FAERS Safety Report 17236077 (Version 1)
Quarter: 2020Q1

REPORT INFORMATION
  Report Type: Spontaneous
  Country: US (occurrence: US)
  Receive Date: 20200106
  Receipt Date: 20200106
  Transmission Date: 20200409
  Serious: No
  Sender: FDA-Public Use
  Company Number: NVSC2020US000946

PATIENT
  Age: 6 Year
  Sex: Male

DRUGS (1)
  1. CANAKINUMAB. [Suspect]
     Active Substance: CANAKINUMAB
     Indication: ALVEOLAR PROTEINOSIS
     Route: 065

REACTIONS (1)
  - Therapy non-responder [Unknown]
